FAERS Safety Report 16330600 (Version 3)
Quarter: 2019Q4

REPORT INFORMATION
  Report Type: Report from Study
  Country: US (occurrence: US)
  Receive Date: 20190520
  Receipt Date: 20191111
  Transmission Date: 20200122
  Serious: Yes (Hospitalization)
  Sender: FDA-Public Use
  Company Number: US-ROCHE-2318550

PATIENT
  Age: 45 Year
  Sex: Female

DRUGS (1)
  1. OCREVUS [Suspect]
     Active Substance: OCRELIZUMAB
     Indication: MULTIPLE SCLEROSIS
     Route: 065
     Dates: start: 20180905

REACTIONS (5)
  - Urinary tract infection [Recovered/Resolved]
  - Renal failure [Recovered/Resolved]
  - Sepsis [Recovered/Resolved]
  - Kidney infection [Recovered/Resolved]
  - Hepatic infection [Recovered/Resolved]

NARRATIVE: CASE EVENT DATE: 20190406
